FAERS Safety Report 6451458-8 (Version None)
Quarter: 2009Q4

REPORT INFORMATION
  Report Type: 
  Country: None (occurrence: None)
  Receive Date: 20091123
  Receipt Date: 20090203
  Transmission Date: 20100525
  Serious: Yes (Other)
  Sender: FDA-Public Use
  Company Number: US-BRISTOL-MYERS SQUIBB COMPANY-14487623

PATIENT
  Age: 53 Year
  Sex: Male
  Weight: 100 kg

DRUGS (5)
  1. AVALIDE [Suspect]
     Indication: HYPERTENSION
     Dosage: 1 DOSAGE FORM = 300 MG/12.5 MG
  2. AMLODIPINE [Concomitant]
  3. COREG [Concomitant]
  4. CARVEDILOL [Concomitant]
  5. INSULIN DETEMIR [Concomitant]

REACTIONS (1)
  - ANGIOEDEMA [None]
